FAERS Safety Report 4764537-8 (Version None)
Quarter: 2005Q3

REPORT INFORMATION
  Report Type: 
  Country: None (occurrence: None)
  Receive Date: 20050907
  Receipt Date: 20050825
  Transmission Date: 20060218
  Serious: Yes (Hospitalization)
  Sender: FDA-Public Use
  Company Number: 2004121680

PATIENT
  Age: 65 Year
  Sex: Male
  Weight: 74 kg

DRUGS (11)
  1. CAMPTOSAR [Suspect]
     Indication: COLON CANCER
     Dosage: 342 MG
     Dates: start: 20041123
  2. FLUOROURACIL [Suspect]
     Indication: COLON CANCER
     Dosage: SEE IMAGE
     Route: 042
     Dates: start: 20041123
  3. FLUOROURACIL [Suspect]
     Indication: COLON CANCER
     Dosage: SEE IMAGE
     Route: 042
     Dates: start: 20041123
  4. LEUCOVORIN CALCIUM [Suspect]
     Indication: COLON CANCER
     Dosage: SEE IMAGE
     Dates: start: 20041123
  5. LEUCOVORIN CALCIUM [Suspect]
     Indication: COLON CANCER
     Dosage: SEE IMAGE
     Dates: start: 20041123
  6. OPIUM TINCTURE (OPIUM TINCTURE) [Concomitant]
  7. ATROPINE SULFATE [Concomitant]
  8. MARCUMAR [Concomitant]
  9. METOCLOPRAMIDE HYDROCHLORIDE [Concomitant]
  10. PERENTEROL (YEAST DRIED) [Concomitant]
  11. KALITRANS (POTASSIUM BICARBONATE) [Concomitant]

REACTIONS (8)
  - COAGULOPATHY [None]
  - DIARRHOEA [None]
  - HAEMATOMA [None]
  - INTERNATIONAL NORMALISED RATIO INCREASED [None]
  - NAUSEA [None]
  - PROTHROMBIN TIME PROLONGED [None]
  - RENAL FAILURE [None]
  - VOMITING [None]
